FAERS Safety Report 9439603 (Version 2)
Quarter: 2013Q3

REPORT INFORMATION
  Report Type: Spontaneous
  Country: NZ (occurrence: NZ)
  Receive Date: 20130805
  Receipt Date: 20130814
  Transmission Date: 20140515
  Serious: Yes (Other)
  Sender: FDA-Public Use
  Company Number: NZ-ROCHE-1257249

PATIENT
  Age: 58 Year
  Sex: Female

DRUGS (3)
  1. ACTEMRA [Suspect]
     Indication: RHEUMATOID ARTHRITIS
     Route: 042
     Dates: start: 20121113
  2. ALENDRONATE [Concomitant]
     Indication: OSTEOPOROSIS
     Dosage: MORE THAN 5 YEARS
     Route: 048
  3. FERROUS SULPHATE [Concomitant]
     Indication: IRON DEFICIENCY
     Route: 048
     Dates: start: 2013

REACTIONS (2)
  - Spinal fracture [Recovering/Resolving]
  - Neutropenia [Recovered/Resolved]
